FAERS Safety Report 8487349-0 (Version None)
Quarter: 2012Q2

REPORT INFORMATION
  Report Type: 
  Country: None (occurrence: None)
  Receive Date: 20120628
  Receipt Date: 20120628
  Transmission Date: 20120825
  Serious: Yes (Life-Threatening, Hospitalization)
  Sender: FDA-Public Use
  Company Number: None

PATIENT
  Sex: Female
  Weight: 52.6173 kg

DRUGS (1)
  1. PRADAXA [Suspect]
     Indication: CARDIAC FIBRILLATION
     Dosage: BID PO
     Route: 048
     Dates: start: 20111120

REACTIONS (3)
  - HAEMORRHAGE [None]
  - LUNG INFILTRATION [None]
  - ALCOHOLIC [None]
